FAERS Safety Report 15554288 (Version 1)
Quarter: 2018Q4

REPORT INFORMATION
  Report Type: Spontaneous
  Country: US (occurrence: US)
  Receive Date: 20181025
  Receipt Date: 20181025
  Transmission Date: 20190205
  Serious: Yes (Other)
  Sender: FDA-Public Use
  Company Number: None

PATIENT
  Age: 29 Year
  Sex: Female
  Weight: 55.8 kg

DRUGS (3)
  1. BUPROPION XL [Suspect]
     Active Substance: BUPROPION
     Indication: DEPRESSION
  2. ADDERALL [Concomitant]
     Active Substance: AMPHETAMINE ASPARTATE\AMPHETAMINE SULFATE\DEXTROAMPHETAMINE SACCHARATE\DEXTROAMPHETAMINE SULFATE
  3. CYCLOBENZAPRENE [Concomitant]

REACTIONS (13)
  - Anger [None]
  - Condition aggravated [None]
  - Depression [None]
  - Contusion [None]
  - Therapy change [None]
  - Paranoia [None]
  - Hallucination, tactile [None]
  - Mood swings [None]
  - Alopecia [None]
  - Migraine [None]
  - Suicidal ideation [None]
  - Self-injurious ideation [None]
  - Myalgia [None]
